FAERS Safety Report 9373006 (Version 2)
Quarter: 2013Q3

REPORT INFORMATION
  Report Type: Spontaneous
  Country: US (occurrence: US)
  Receive Date: 20130627
  Receipt Date: 20130704
  Transmission Date: 20140515
  Serious: Yes (Other)
  Sender: FDA-Public Use
  Company Number: US-BRISTOL-MYERS SQUIBB COMPANY-19043942

PATIENT
  Age: 66 Year
  Sex: Male
  Weight: 101.58 kg

DRUGS (1)
  1. BYETTA [Suspect]
     Indication: TYPE 2 DIABETES MELLITUS
     Dosage: INTER-24JUN13
     Dates: start: 2007, end: 201306

REACTIONS (3)
  - Pancreatic cyst [Unknown]
  - Weight decreased [Unknown]
  - Hypercalcaemia [Unknown]
